FAERS Safety Report 6079870-X (Version None)
Quarter: 2009Q1

REPORT INFORMATION
  Report Type: 
  Country: None (occurrence: None)
  Receive Date: 20090212
  Receipt Date: 20090128
  Transmission Date: 20090719
  Serious: Yes (Life-Threatening, Hospitalization)
  Sender: FDA-Public Use
  Company Number: INT_00009_2009

PATIENT
  Sex: Female

DRUGS (6)
  1. CEFTRIAXONE [Suspect]
     Indication: DRUG USE FOR UNKNOWN INDICATION
     Dosage: (1 G 1X TRANSPLACENTAL)
     Route: 064
  2. CHLORPHENIRAMINE (UNKNOWN) [Concomitant]
  3. HYDROCORTISONE (UNKNOWN) [Concomitant]
  4. ADRENALINE /00003901/ (UNKNOWN) [Concomitant]
  5. CRYSTALLOID (UNKNOWN) [Concomitant]
  6. COLLOID (UNKNOWN) [Concomitant]

REACTIONS (10)
  - AGITATION NEONATAL [None]
  - APGAR SCORE LOW [None]
  - CAESAREAN SECTION [None]
  - CONVULSION NEONATAL [None]
  - FOETAL HEART RATE DECELERATION [None]
  - HYPOXIC ENCEPHALOPATHY [None]
  - INFANTILE APNOEIC ATTACK [None]
  - MATERNAL DRUGS AFFECTING FOETUS [None]
  - PREMATURE SEPARATION OF PLACENTA [None]
  - TACHYCARDIA FOETAL [None]
